FAERS Safety Report 9959528 (Version 1)
Quarter: 2014Q1

REPORT INFORMATION
  Report Type: Spontaneous
  Country: None (occurrence: None)
  Receive Date: 20140227
  Receipt Date: 20140227
  Transmission Date: 20141002
  Serious: Yes (Hospitalization, Disabling)
  Sender: FDA-Public Use
  Company Number: 2014P1001305

PATIENT
  Age: 57 Year
  Sex: Female

DRUGS (1)
  1. METHIMAZOLE [Suspect]
     Indication: BASEDOW^S DISEASE

REACTIONS (12)
  - Anaemia [None]
  - Agranulocytosis [None]
  - Pneumonia fungal [None]
  - Hyperthyroidism [None]
  - Wheelchair user [None]
  - Fatigue [None]
  - Opportunistic infection [None]
  - Guillain-Barre syndrome [None]
  - No therapeutic response [None]
  - Gastroenteritis [None]
  - Quadriplegia [None]
  - Dysarthria [None]
